FAERS Safety Report 15700345 (Version 1)
Quarter: 2018Q4

REPORT INFORMATION
  Report Type: Spontaneous
  Country: ES (occurrence: ES)
  Receive Date: 20181207
  Receipt Date: 20181207
  Transmission Date: 20190205
  Serious: Yes (Life-Threatening, Hospitalization)
  Sender: FDA-Public Use
  Company Number: PHHY2018ES176280

PATIENT
  Age: 21 Year
  Sex: Male

DRUGS (1)
  1. RIMSTAR [Suspect]
     Active Substance: ETHAMBUTOL\ISONIAZID\PYRAZINAMIDE\RIFAMYCIN
     Indication: TUBERCULOUS PLEURISY
     Route: 065

REACTIONS (13)
  - Coagulopathy [Recovering/Resolving]
  - Eosinophilia [Recovering/Resolving]
  - Multi-organ disorder [Recovering/Resolving]
  - Acute respiratory failure [Recovering/Resolving]
  - Shock [Recovering/Resolving]
  - Acute kidney injury [Recovering/Resolving]
  - Drug reaction with eosinophilia and systemic symptoms [Recovering/Resolving]
  - Hyperthermia [Recovering/Resolving]
  - Rash maculo-papular [Recovering/Resolving]
  - Thrombocytopenia [Recovering/Resolving]
  - Cardiac dysfunction [Recovering/Resolving]
  - Ventricular hypokinesia [Recovering/Resolving]
  - Hypertransaminasaemia [Recovering/Resolving]
